FAERS Safety Report 4854171-3 (Version None)
Quarter: 2005Q4

REPORT INFORMATION
  Report Type: 
  Country: None (occurrence: None)
  Receive Date: 20051213
  Receipt Date: 20051202
  Transmission Date: 20060501
  Serious: Yes (Hospitalization, Other)
  Sender: FDA-Public Use
  Company Number: 2005164802

PATIENT
  Age: 48 Year
  Sex: Male

DRUGS (3)
  1. NEURONTIN [Suspect]
     Indication: ILL-DEFINED DISORDER
  2. LYRICA [Suspect]
     Indication: ILL-DEFINED DISORDER
  3. OXYCONTIN [Concomitant]

REACTIONS (4)
  - ALCOHOLIC LIVER DISEASE [None]
  - CONDITION AGGRAVATED [None]
  - DRUG INTOLERANCE [None]
  - ENCEPHALOPATHY [None]
